FAERS Safety Report 9816992 (Version 1)
Quarter: 2014Q1

REPORT INFORMATION
  Report Type: Spontaneous
  Country: JP (occurrence: JP)
  Receive Date: 20140114
  Receipt Date: 20140114
  Transmission Date: 20141002
  Serious: Yes (Other)
  Sender: FDA-Public Use
  Company Number: JP-GLAXOSMITHKLINE-B0959497A

PATIENT
  Age: 16 Year
  Sex: 0

DRUGS (4)
  1. LAMICTAL [Suspect]
     Indication: PARTIAL SEIZURES
     Route: 048
     Dates: start: 201309, end: 201312
  2. LAMICTAL [Suspect]
     Indication: PARTIAL SEIZURES
     Dosage: 200MG PER DAY
     Route: 048
     Dates: start: 201312, end: 20140106
  3. LAMICTAL [Suspect]
     Indication: PARTIAL SEIZURES
     Dosage: 200MG TWICE PER DAY
     Route: 048
     Dates: start: 20140107, end: 20140107
  4. TEGRETOL [Concomitant]
     Route: 048

REACTIONS (3)
  - Epilepsy [Unknown]
  - Dizziness [Unknown]
  - Accidental overdose [Unknown]
